FAERS Safety Report 16975143 (Version 1)
Quarter: 2019Q4

REPORT INFORMATION
  Report Type: Spontaneous
  Country: US (occurrence: US)
  Receive Date: 20190913
  Receipt Date: 20190913
  Transmission Date: 20200122
  Serious: Yes (Hospitalization)
  Sender: FDA-Public Use
  Company Number: None

PATIENT
  Age: 75 Year
  Sex: Female

DRUGS (18)
  1. PREDNISONE. [Concomitant]
     Active Substance: PREDNISONE
  2. ORENCIA [Suspect]
     Active Substance: ABATACEPT
     Indication: RHEUMATOID ARTHRITIS
     Route: 058
     Dates: start: 20190409
  3. ALENDRONATE [Concomitant]
     Active Substance: ALENDRONATE SODIUM
  4. ESTRADERM [Concomitant]
     Active Substance: ESTRADIOL
  5. VITAMIN B12 [Concomitant]
     Active Substance: CYANOCOBALAMIN
  6. METHOTRXATE [Concomitant]
  7. ALLEGRA [Concomitant]
     Active Substance: FEXOFENADINE HYDROCHLORIDE
  8. ELIQUIS [Concomitant]
     Active Substance: APIXABAN
  9. DILTIAZEM. [Concomitant]
     Active Substance: DILTIAZEM
  10. TRAMADOL. [Concomitant]
     Active Substance: TRAMADOL
  11. CELEBREX [Concomitant]
     Active Substance: CELECOXIB
  12. LOSARTAN. [Concomitant]
     Active Substance: LOSARTAN
  13. LYRICA [Concomitant]
     Active Substance: PREGABALIN
  14. NEURONTIN [Concomitant]
     Active Substance: GABAPENTIN
  15. ASPIRIN. [Concomitant]
     Active Substance: ASPIRIN
  16. CALTRATE [Concomitant]
     Active Substance: CALCIUM CARBONATE
  17. FOLIC AICD [Concomitant]
  18. PREGABALIN. [Concomitant]
     Active Substance: PREGABALIN

REACTIONS (6)
  - Peripheral swelling [None]
  - Fall [None]
  - Infection [None]
  - Loss of personal independence in daily activities [None]
  - Therapy cessation [None]
  - Pain [None]
